FAERS Safety Report 6030751-7 (Version None)
Quarter: 2009Q1

REPORT INFORMATION
  Report Type: 
  Country: None (occurrence: None)
  Receive Date: 20090107
  Receipt Date: 20081230
  Transmission Date: 20090719
  Serious: Yes (Hospitalization)
  Sender: FDA-Public Use
  Company Number: ES-ASTRAZENECA-2008AC03482

PATIENT
  Age: 72 Year
  Sex: Male

DRUGS (1)
  1. SYMBICORT FORTE TURBUHALER [Suspect]
     Indication: ASTHMA
     Dosage: 320/9 UG 60 DOSES
     Route: 055
     Dates: start: 20080918, end: 20080922

REACTIONS (1)
  - ANGINA UNSTABLE [None]
